FAERS Safety Report 13913744 (Version 1)
Quarter: 2017Q3

REPORT INFORMATION
  Report Type: Spontaneous
  Country: DE (occurrence: DE)
  Receive Date: 20170829
  Receipt Date: 20170829
  Transmission Date: 20171127
  Serious: Yes (Congenital Anomaly, Other)
  Sender: FDA-Public Use
  Company Number: DE-MYLANLABS-2017M1052443

PATIENT

DRUGS (3)
  1. FOLIC ACID. [Concomitant]
     Active Substance: FOLIC ACID
     Indication: PROPHYLAXIS OF NEURAL TUBE DEFECT
     Dosage: 5 [MG/D ]
     Route: 064
     Dates: start: 20160601, end: 20160728
  2. CARBAMAZEPINE. [Suspect]
     Active Substance: CARBAMAZEPINE
     Indication: GENERALISED TONIC-CLONIC SEIZURE
     Dosage: 400 [MG/D ]
     Route: 064
     Dates: start: 20160601, end: 20170302
  3. CEFTRIAXON [Concomitant]
     Active Substance: CEFTRIAXONE
     Indication: SYPHILIS
     Dosage: 2000 [MG/D ]
     Route: 064
     Dates: start: 20160720, end: 20160731

REACTIONS (2)
  - Microcephaly [Unknown]
  - Foetal exposure during pregnancy [Recovered/Resolved]

NARRATIVE: CASE EVENT DATE: 20170302
